FAERS Safety Report 6933512-7 (Version None)
Quarter: 2010Q3

REPORT INFORMATION
  Report Type: 
  Country: None (occurrence: None)
  Receive Date: 20100820
  Receipt Date: 20100809
  Transmission Date: 20110219
  Serious: Yes (Hospitalization, Other)
  Sender: FDA-Public Use
  Company Number: AU-PFIZER INC-2010099418

PATIENT
  Age: 29 Year
  Sex: Male

DRUGS (3)
  1. CHAMPIX [Suspect]
     Dosage: UNK
  2. ALCOHOL [Interacting]
     Dosage: UNK
  3. DEXAMPHETAMINE [Concomitant]
     Dosage: 6 PER DAY

REACTIONS (5)
  - ABNORMAL BEHAVIOUR [None]
  - AMNESIA [None]
  - DREAMY STATE [None]
  - DRUG INTERACTION [None]
  - LOSS OF EMPLOYMENT [None]
